FAERS Safety Report 8444715-7 (Version None)
Quarter: 2012Q2

REPORT INFORMATION
  Report Type: 
  Country: None (occurrence: None)
  Receive Date: 20120323
  Receipt Date: 20110622
  Transmission Date: 20120825
  Serious: Yes (Hospitalization)
  Sender: FDA-Public Use
  Company Number: 163-21880-11063051

PATIENT
  Age: 57 Year
  Sex: Female
  Weight: 49.4421 kg

DRUGS (5)
  1. LEXAPRO [Concomitant]
  2. ATENOLOL [Concomitant]
  3. REVLIMID [Suspect]
     Indication: MULTIPLE MYELOMA
     Dosage: 25 MG, X 21 DAYS/OFF 7 DAYS, PO
     Route: 048
     Dates: start: 20110530
  4. REVLIMID [Suspect]
     Indication: PARAPROTEINAEMIA
     Dosage: 25 MG, X 21 DAYS/OFF 7 DAYS, PO
     Route: 048
     Dates: start: 20110530
  5. PREMARIN [Concomitant]

REACTIONS (1)
  - RENAL IMPAIRMENT [None]
